FAERS Safety Report 9853831 (Version 4)
Quarter: 2014Q2

REPORT INFORMATION
  Report Type: Spontaneous
  Country: DE (occurrence: DE)
  Receive Date: 20140129
  Receipt Date: 20140605
  Transmission Date: 20141212
  Serious: Yes (Life-Threatening, Hospitalization)
  Sender: FDA-Public Use
  Company Number: DE-CELGENEUS-062-POMAL-14013840

PATIENT
  Age: 72 Year
  Sex: Female
  Weight: 60 kg

DRUGS (9)
  1. IMNOVID [Suspect]
     Indication: PLASMA CELL MYELOMA
     Dosage: 3 MILLIGRAM
     Route: 048
     Dates: start: 20140116, end: 20140121
  2. IMNOVID [Suspect]
     Dosage: 3 MILLIGRAM
     Route: 048
     Dates: start: 20140204
  3. DEXAMETHASONE [Concomitant]
     Indication: PLASMA CELL MYELOMA
     Route: 065
     Dates: start: 200710, end: 200802
  4. DEXAMETHASONE [Concomitant]
     Route: 065
     Dates: start: 201101, end: 201307
  5. DEXAMETHASONE [Concomitant]
     Route: 065
     Dates: start: 20130730, end: 20140108
  6. DEXAMETHASONE [Concomitant]
     Dosage: 40 MILLIGRAM
     Route: 065
     Dates: start: 20140204
  7. BORTEZOMIB [Concomitant]
     Indication: PLASMA CELL MYELOMA
     Route: 058
     Dates: start: 201101, end: 201307
  8. BORTEZOMIB [Concomitant]
     Route: 058
     Dates: start: 20130730, end: 20140108
  9. ZOMETA [Concomitant]
     Indication: PLASMA CELL MYELOMA
     Dosage: 4 MILLIGRAM
     Route: 041
     Dates: start: 20070622

REACTIONS (2)
  - Cardiac failure [Recovered/Resolved]
  - Pleural effusion [Recovering/Resolving]
